FAERS Safety Report 5020000-0 (Version None)
Quarter: 2006Q2

REPORT INFORMATION
  Report Type: 
  Country: None (occurrence: None)
  Receive Date: 20060602
  Receipt Date: 20060524
  Transmission Date: 20061013
  Serious: Yes (Hospitalization)
  Sender: FDA-Public Use
  Company Number: 200610475BFR

PATIENT
  Age: 72 Year
  Sex: Female

DRUGS (4)
  1. ACARBOSE [Suspect]
     Indication: DIABETES MELLITUS
     Dosage: 400 MG, ORAL
     Route: 048
     Dates: end: 20051230
  2. GLIPIZIDE [Suspect]
     Indication: DIABETES MELLITUS
     Dosage: 400 MG, ORAL
     Route: 048
     Dates: end: 20051230
  3. ARICEPT [Suspect]
     Indication: PRESENILE DEMENTIA
     Dosage: 10 MG, ORAL
     Route: 048
     Dates: start: 20050801, end: 20051228
  4. COTAREG [Suspect]
     Dosage: ORAL
     Route: 048
     Dates: end: 20051228

REACTIONS (12)
  - AORTIC ARTERIOSCLEROSIS [None]
  - CAROTID ARTERY ATHEROMA [None]
  - DISORIENTATION [None]
  - EMBOLISM [None]
  - HEPATIC LESION [None]
  - HEPATIC NEOPLASM [None]
  - HEPATIC STEATOSIS [None]
  - HYPERGLYCAEMIA [None]
  - HYPERTENSIVE CRISIS [None]
  - HYPERTRIGLYCERIDAEMIA [None]
  - HYPONATRAEMIA [None]
  - LOSS OF CONSCIOUSNESS [None]
